FAERS Safety Report 8140005-0 (Version None)
Quarter: 2012Q1

REPORT INFORMATION
  Report Type: 
  Country: None (occurrence: None)
  Receive Date: 20120215
  Receipt Date: 20120208
  Transmission Date: 20120608
  Serious: Yes (Other)
  Sender: FDA-Public Use
  Company Number: US-ASTRAZENECA-2011SE32088

PATIENT
  Age: 65 Year
  Sex: Female

DRUGS (1)
  1. NEXIUM [Suspect]
     Route: 048

REACTIONS (9)
  - THROAT TIGHTNESS [None]
  - BREAST CANCER FEMALE [None]
  - REGURGITATION [None]
  - THROAT IRRITATION [None]
  - OESOPHAGEAL DILATATION [None]
  - VOMITING [None]
  - DRUG DOSE OMISSION [None]
  - APHAGIA [None]
  - CHOKING [None]
